FAERS Safety Report 8373738-1 (Version None)
Quarter: 2012Q2

REPORT INFORMATION
  Report Type: 
  Country: None (occurrence: None)
  Receive Date: 20120521
  Receipt Date: 20120516
  Transmission Date: 20120825
  Serious: Yes (Life-Threatening)
  Sender: FDA-Public Use
  Company Number: FR-PFIZER INC-2011305066

PATIENT
  Age: 50 Year
  Sex: Female
  Weight: 45.6 kg

DRUGS (16)
  1. ACETAMINOPHEN [Concomitant]
     Dosage: 1 G, 4X/DAY
  2. ATROVENT [Concomitant]
     Dosage: 3 DF DAILY
  3. CYCLOSPORINE [Suspect]
     Indication: IMMUNOSUPPRESSION
     Dosage: UNK
     Route: 042
     Dates: start: 20111024, end: 20111109
  4. EPREX [Suspect]
     Indication: ANAEMIA
     Dosage: 8000 IU, 3X/WEEK
     Dates: start: 20111024
  5. BRICANYL [Concomitant]
     Dosage: 3 DF DAILY
  6. VFEND [Suspect]
     Indication: INFECTION
     Dosage: 400 MG, 2X/DAY
     Dates: start: 20111024
  7. CELLCEPT [Suspect]
     Indication: IMMUNOSUPPRESSION
     Dosage: 1 G, 2X/DAY
     Dates: start: 20111024
  8. INVANZ [Suspect]
     Indication: INFECTION
     Dosage: UNK
     Dates: start: 20111110, end: 20111114
  9. PREDNISONE TAB [Concomitant]
     Dosage: UNK
  10. LASIX [Concomitant]
     Dosage: 40 MG DAILY
  11. VALACYCLOVIR HYDROCHLORIDE [Concomitant]
     Dosage: 100 MG, 2X/DAY
  12. CALCIUM FOLINATE [Concomitant]
     Dosage: 25 MG, 3X/WEEK
  13. PROGRAF [Suspect]
     Indication: IMMUNOSUPPRESSION
     Dosage: UNK
     Dates: start: 20111107, end: 20111116
  14. UMULINE [Concomitant]
  15. CYCLOSPORINE [Suspect]
     Dosage: UNK
     Dates: start: 20111116
  16. NEXIUM [Concomitant]
     Dosage: 40 MG DAILY

REACTIONS (1)
  - POSTERIOR REVERSIBLE ENCEPHALOPATHY SYNDROME [None]
